FAERS Safety Report 21290767 (Version 1)
Quarter: 2022Q3

REPORT INFORMATION
  Report Type: Report from Study
  Country: US (occurrence: US)
  Receive Date: 20220903
  Receipt Date: 20220903
  Transmission Date: 20221027
  Serious: Yes (Other)
  Sender: FDA-Public Use
  Company Number: US-SA-SAC20220901002088

PATIENT
  Age: 45 Year
  Sex: Male

DRUGS (1)
  1. ELOCTATE [Suspect]
     Active Substance: (1-743)-(1638-2332)-BLOOD-COAGULATION FACTOR VIII (SYNTHETIC HUMAN) FUSION PROTEIN WITH IMMUNOGLOBUL
     Indication: Factor VIII deficiency
     Dosage: PROPHYLACTIC
     Route: 065
     Dates: start: 20200510, end: 20220508

REACTIONS (3)
  - Haemorrhage [Unknown]
  - Joint stiffness [Unknown]
  - Arthralgia [Unknown]
